FAERS Safety Report 22340214 (Version 1)
Quarter: 2023Q2

REPORT INFORMATION
  Report Type: Report from Study
  Country: US (occurrence: US)
  Receive Date: 20230518
  Receipt Date: 20230518
  Transmission Date: 20230722
  Serious: Yes (Other)
  Sender: FDA-Public Use
  Company Number: US-JAZZ-2022-US-036705

PATIENT
  Age: 32 Year
  Sex: Female

DRUGS (15)
  1. XYREM [Suspect]
     Active Substance: SODIUM OXYBATE
     Indication: Narcolepsy
     Dosage: 3 GRAM, BID
     Dates: start: 20221125, end: 20221127
  2. XYREM [Suspect]
     Active Substance: SODIUM OXYBATE
     Indication: Cataplexy
     Dosage: 3 GRAM, BID
     Dates: start: 20221202, end: 20221213
  3. XYREM [Suspect]
     Active Substance: SODIUM OXYBATE
     Indication: Somnolence
     Dosage: 2.25 GRAM, BID
     Dates: start: 20230101
  4. XYREM [Suspect]
     Active Substance: SODIUM OXYBATE
     Dosage: 3 GRAM, BID
     Dates: start: 20230106
  5. XYREM [Suspect]
     Active Substance: SODIUM OXYBATE
     Dosage: 4.5 GRAM, BID
  6. XYREM [Suspect]
     Active Substance: SODIUM OXYBATE
     Dosage: 4 GRAM, BID
  7. FLAGYL [Concomitant]
     Active Substance: METRONIDAZOLE\METRONIDAZOLE HYDROCHLORIDE
     Indication: Product used for unknown indication
     Dosage: UNK
     Dates: start: 20230222, end: 20230301
  8. VICKS DAYQUIL [Concomitant]
     Active Substance: DEXTROMETHORPHAN HYDROBROMIDE\GUAIFENESIN
     Indication: Product used for unknown indication
     Dosage: UNK
     Dates: start: 20221127
  9. VALACYCLOVIR HYDROCHLORIDE [Concomitant]
     Active Substance: VALACYCLOVIR HYDROCHLORIDE
     Indication: Product used for unknown indication
  10. OFLOXACIN [Concomitant]
     Active Substance: OFLOXACIN
     Indication: Product used for unknown indication
  11. REFRESH CLASSIC LUBRICANT EYE DROPS [Concomitant]
     Indication: Product used for unknown indication
     Dosage: UNK
     Dates: start: 20230321
  12. IBUPROFEN [Concomitant]
     Active Substance: IBUPROFEN
     Indication: Product used for unknown indication
     Dosage: UNK
     Dates: start: 20230305
  13. CLINDAMYCIN [Concomitant]
     Active Substance: CLINDAMYCIN
     Indication: Product used for unknown indication
     Dosage: UNK
     Dates: start: 20230323, end: 20230329
  14. BENZOYL PEROXIDE [Concomitant]
     Active Substance: BENZOYL PEROXIDE
     Indication: Product used for unknown indication
     Dosage: UNK
     Dates: start: 20230323
  15. DIFFERIN [Concomitant]
     Active Substance: ADAPALENE
     Indication: Product used for unknown indication
     Dosage: UNK
     Dates: start: 20230323

REACTIONS (26)
  - Hallucination, auditory [Unknown]
  - Respiratory syncytial virus infection [Not Recovered/Not Resolved]
  - Influenza [Unknown]
  - Hiccups [Unknown]
  - Feeling abnormal [Unknown]
  - Nausea [Unknown]
  - Nocturia [Unknown]
  - Dysphemia [Unknown]
  - Corneal abrasion [Unknown]
  - Biopsy lip [Unknown]
  - Pelvic pain [Unknown]
  - Asthma exercise induced [Unknown]
  - Cervical dysplasia [Unknown]
  - Hypersensitivity [Unknown]
  - Irritable bowel syndrome [Unknown]
  - Post-traumatic stress disorder [Unknown]
  - Tobacco abuse [Unknown]
  - Early satiety [Unknown]
  - Fatigue [Unknown]
  - Tremor [Not Recovered/Not Resolved]
  - Lethargy [Unknown]
  - Agitation [Unknown]
  - Sleep terror [Unknown]
  - Intentional product use issue [Unknown]
  - Product administration interrupted [Unknown]
  - Product dose omission issue [Unknown]

NARRATIVE: CASE EVENT DATE: 20221127
